FAERS Safety Report 7258897-6 (Version None)
Quarter: 2011Q1

REPORT INFORMATION
  Report Type: 
  Country: None (occurrence: None)
  Receive Date: 20110129
  Receipt Date: 20100609
  Transmission Date: 20110831
  Serious: No
  Sender: FDA-Public Use
  Company Number: US-ABBOTT-10P-163-0651031-00

PATIENT
  Sex: Female

DRUGS (2)
  1. HUMIRA [Suspect]
     Dates: start: 20100601
  2. HUMIRA [Suspect]
     Indication: IRIDOCYCLITIS
     Dates: start: 20100401, end: 20100501

REACTIONS (1)
  - BUTTERFLY RASH [None]
